FAERS Safety Report 17140753 (Version 1)
Quarter: 2019Q4

REPORT INFORMATION
  Report Type: Report from Study
  Country: UA (occurrence: UA)
  Receive Date: 20191211
  Receipt Date: 20191211
  Transmission Date: 20200122
  Serious: Yes (Hospitalization)
  Sender: FDA-Public Use
  Company Number: UA-ASTRAZENECA-2019SF75560

PATIENT
  Age: 23496 Day
  Sex: Male

DRUGS (2)
  1. SYMBICORT [Suspect]
     Active Substance: BUDESONIDE\FORMOTEROL FUMARATE DIHYDRATE
     Indication: CHRONIC OBSTRUCTIVE PULMONARY DISEASE
     Dosage: 320 UG, UNKNOWN FREQUENCY UNKNOWN
     Route: 055
     Dates: start: 20191115, end: 20191117
  2. SPIRIVA [Concomitant]
     Active Substance: TIOTROPIUM BROMIDE MONOHYDRATE
     Dates: start: 20191115

REACTIONS (5)
  - Dry mouth [Recovered/Resolved]
  - Insomnia [Recovered/Resolved]
  - Oral candidiasis [Recovered/Resolved]
  - Asphyxia [Recovered/Resolved]
  - Tachycardia [Recovered/Resolved]

NARRATIVE: CASE EVENT DATE: 20191115
